FAERS Safety Report 18747417 (Version 6)
Quarter: 2024Q1

REPORT INFORMATION
  Report Type: Report from Study
  Country: US (occurrence: US)
  Receive Date: 20210115
  Receipt Date: 20240103
  Transmission Date: 20240410
  Serious: Yes (Hospitalization, Other)
  Sender: FDA-Public Use
  Company Number: NVSC2021US005838

PATIENT
  Sex: Female

DRUGS (2)
  1. COSENTYX [Suspect]
     Active Substance: SECUKINUMAB
     Indication: Product used for unknown indication
     Dosage: 300 MG
     Route: 058
     Dates: start: 202006
  2. COSENTYX [Suspect]
     Active Substance: SECUKINUMAB
     Dosage: 150 MG, QMO
     Route: 058

REACTIONS (5)
  - Confusional state [Unknown]
  - Fall [Unknown]
  - Cerebrovascular accident [Unknown]
  - Upper limb fracture [Unknown]
  - Memory impairment [Unknown]
